FAERS Safety Report 4384076-6 (Version None)
Quarter: 2004Q2

REPORT INFORMATION
  Report Type: 
  Country: None (occurrence: None)
  Receive Date: 20040621
  Receipt Date: 20040609
  Transmission Date: 20050107
  Serious: Yes (Hospitalization)
  Sender: FDA-Public Use
  Company Number: DE-2004-026784

PATIENT
  Sex: Female

DRUGS (1)
  1. MAGNEVIST [Suspect]
     Dosage: 15 ML, 1 DOSE
     Route: 042

REACTIONS (2)
  - CARDIOVASCULAR DISORDER [None]
  - TREMOR [None]
